FAERS Safety Report 20512666 (Version 1)
Quarter: 2022Q1

REPORT INFORMATION
  Report Type: Spontaneous
  Country: US (occurrence: None)
  Receive Date: 20220224
  Receipt Date: 20220224
  Transmission Date: 20220424
  Serious: Yes (Other)
  Sender: FDA-Public Use
  Company Number: US-Fresenius Kabi-FK202202108

PATIENT
  Age: 25 Year
  Sex: Male

DRUGS (1)
  1. PROPOFOL [Suspect]
     Active Substance: PROPOFOL
     Indication: Sedative therapy
     Dosage: DOSAGE NOT STATED
     Route: 065

REACTIONS (4)
  - Hyperlipidaemia [Recovering/Resolving]
  - Hypertriglyceridaemia [Recovering/Resolving]
  - Complication associated with device [Recovering/Resolving]
  - Hypoxia [Recovering/Resolving]
